FAERS Safety Report 10686041 (Version 2)
Quarter: 2015Q2

REPORT INFORMATION
  Report Type: Report from Study
  Country: BR (occurrence: BR)
  Receive Date: 20141231
  Receipt Date: 20150406
  Transmission Date: 20150821
  Serious: Yes (Other)
  Sender: FDA-Public Use
  Company Number: PHHY2014BR170294

PATIENT
  Sex: Male

DRUGS (4)
  1. DIOVAN [Suspect]
     Active Substance: VALSARTAN
     Indication: HYPERTENSION
     Dosage: 1 DF (160 MG), QD
     Route: 048
     Dates: end: 201501
  2. DIOVAN [Suspect]
     Active Substance: VALSARTAN
     Dosage: 3 DF (80 MG), QD
     Route: 048
     Dates: start: 20150330
  3. DIOVAN [Suspect]
     Active Substance: VALSARTAN
     Dosage: 1 DF (320 MG), QD
     Route: 048
     Dates: end: 20150329
  4. DIOVAN [Suspect]
     Active Substance: VALSARTAN
     Dosage: 3 DF (80 MG), QD
     Route: 048

REACTIONS (6)
  - Lung neoplasm [Recovered/Resolved]
  - Asthenia [Unknown]
  - Hypertension [Recovering/Resolving]
  - Blood pressure inadequately controlled [Recovering/Resolving]
  - Cough [Not Recovered/Not Resolved]
  - Malaise [Unknown]

NARRATIVE: CASE EVENT DATE: 201404
